FAERS Safety Report 13383928 (Version 1)
Quarter: 2017Q1

REPORT INFORMATION
  Report Type: Report from Study
  Country: US (occurrence: US)
  Receive Date: 20170329
  Receipt Date: 20170329
  Transmission Date: 20170429
  Serious: No
  Sender: FDA-Public Use
  Company Number: PHEH2014US016654

PATIENT
  Age: 58 Year
  Sex: Female
  Weight: 65.76 kg

DRUGS (5)
  1. MAGNESIUM [Concomitant]
     Active Substance: MAGNESIUM
     Indication: PRODUCT USED FOR UNKNOWN INDICATION
     Route: 065
  2. GILENYA [Suspect]
     Active Substance: FINGOLIMOD HYDROCHLORIDE
     Indication: MULTIPLE SCLEROSIS
     Dosage: 0.5 MG, DAILY
     Route: 048
     Dates: start: 20140630
  3. VITAMIN D3 [Concomitant]
     Active Substance: CHOLECALCIFEROL
  4. PROGESTERONE. [Concomitant]
     Active Substance: PROGESTERONE
  5. ESTROGEN [Concomitant]
     Active Substance: ESTROGENS

REACTIONS (4)
  - Visual field defect [Not Recovered/Not Resolved]
  - Nausea [Not Recovered/Not Resolved]
  - Blood alkaline phosphatase increased [Recovering/Resolving]
  - Vitreous adhesions [Not Recovered/Not Resolved]

NARRATIVE: CASE EVENT DATE: 201701
